FAERS Safety Report 17289924 (Version 2)
Quarter: 2020Q1

REPORT INFORMATION
  Report Type: Spontaneous
  Country: SE (occurrence: SE)
  Receive Date: 20200120
  Receipt Date: 20200127
  Transmission Date: 20200409
  Serious: Yes (Death, Hospitalization)
  Sender: FDA-Public Use
  Company Number: SE-MYLANLABS-2020M1004783

PATIENT
  Sex: Male

DRUGS (3)
  1. NAPROXEN. [Suspect]
     Active Substance: NAPROXEN
     Indication: ARTHRALGIA
     Dosage: UNK
  2. NAPROXEN. [Suspect]
     Active Substance: NAPROXEN
     Indication: ERYTHEMA
     Dosage: UNK, (SINGLE DOSE)
     Route: 065
  3. NAPROXEN. [Suspect]
     Active Substance: NAPROXEN
     Indication: JOINT SWELLING
     Dosage: UNK
     Route: 065

REACTIONS (4)
  - Cardiac arrest [Fatal]
  - Dyspnoea [Fatal]
  - Contraindicated product administered [Fatal]
  - Hypersensitivity [Fatal]
